FAERS Safety Report 12666101 (Version 1)
Quarter: 2016Q3

REPORT INFORMATION
  Report Type: Spontaneous
  Country: US (occurrence: US)
  Receive Date: 20160818
  Receipt Date: 20160818
  Transmission Date: 20161109
  Serious: No
  Sender: FDA-Public Use
  Company Number: US-JAZZ-2016-US-005504

PATIENT
  Age: 36 Year
  Sex: Female

DRUGS (21)
  1. CLINDAMYCIN [Concomitant]
     Active Substance: CLINDAMYCIN\CLINDAMYCIN PHOSPHATE
  2. PRAMIPEXOLE. [Concomitant]
     Active Substance: PRAMIPEXOLE
  3. PULMICORT TURBUHALER [Concomitant]
     Active Substance: BUDESONIDE
  4. VYVANSE [Concomitant]
     Active Substance: LISDEXAMFETAMINE DIMESYLATE
  5. DOXYCYCLINE HYCLATE. [Concomitant]
     Active Substance: DOXYCYCLINE HYCLATE
  6. LEVOTHYROXINE. [Concomitant]
     Active Substance: LEVOTHYROXINE
  7. TRAMADOL HCL [Concomitant]
     Active Substance: TRAMADOL HYDROCHLORIDE
  8. TRIAMCINOLONE [Concomitant]
     Active Substance: TRIAMCINOLONE
  9. CYANOCOBALAMINE [Concomitant]
     Active Substance: CYANOCOBALAMIN
  10. DICLOFENAC SOD [Concomitant]
     Active Substance: DICLOFENAC SODIUM
  11. MULTIVITAMINS [Concomitant]
     Active Substance: VITAMINS
  12. VITAMIN B12 [Concomitant]
     Active Substance: CYANOCOBALAMIN
  13. XYREM [Suspect]
     Active Substance: SODIUM OXYBATE
     Indication: NARCOLEPSY
     Dosage: 2.25 G, BID
     Route: 048
     Dates: start: 201601, end: 201602
  14. FUROSEMIDE. [Concomitant]
     Active Substance: FUROSEMIDE
  15. FIORICET [Concomitant]
     Active Substance: ACETAMINOPHEN\BUTALBITAL\CAFFEINE
  16. CICLOPIROX. [Concomitant]
     Active Substance: CICLOPIROX
  17. PROAIR HFA [Concomitant]
     Active Substance: ALBUTEROL SULFATE
  18. ZOLPIDEM TARTRATE. [Concomitant]
     Active Substance: ZOLPIDEM TARTRATE
  19. XYREM [Suspect]
     Active Substance: SODIUM OXYBATE
     Dosage: 3 G, BID
     Route: 048
     Dates: start: 201602
  20. PROZAC [Concomitant]
     Active Substance: FLUOXETINE HYDROCHLORIDE
  21. CLONAZEPAM. [Concomitant]
     Active Substance: CLONAZEPAM

REACTIONS (2)
  - Therapeutic response unexpected [Unknown]
  - Pre-existing condition improved [Unknown]

NARRATIVE: CASE EVENT DATE: 201601
